FAERS Safety Report 6724768-4 (Version None)
Quarter: 2010Q2

REPORT INFORMATION
  Report Type: 
  Country: None (occurrence: None)
  Receive Date: 20100511
  Receipt Date: 20100506
  Transmission Date: 20101027
  Serious: Yes (Life-Threatening, Hospitalization, Other)
  Sender: FDA-Public Use
  Company Number: 2009-201153-NL

PATIENT
  Age: 42 Year
  Sex: Female
  Weight: 84.8226 kg

DRUGS (20)
  1. NUVARING [Suspect]
     Indication: CONTRACEPTION
     Dosage: 1 DF
     Dates: start: 20080221, end: 20080722
  2. RITALIN [Concomitant]
  3. ADDERALL 30 [Concomitant]
  4. WELLBUTRIN [Concomitant]
  5. INDERAL [Concomitant]
  6. XANAX [Concomitant]
  7. CALCIUM CITRATE [Concomitant]
  8. CELEXA [Concomitant]
  9. VITAMIN B-12 [Concomitant]
  10. CLARITIN [Concomitant]
  11. AMBIEN [Concomitant]
  12. PRAVACHOL [Concomitant]
  13. VICODIN [Concomitant]
  14. FLEXERIL [Concomitant]
  15. INDERAL [Concomitant]
  16. ATENOLOL [Concomitant]
  17. TYLENOL (CAPLET) [Concomitant]
  18. SUMATRIPTAN SUCCINATE [Concomitant]
  19. NEXIUM [Concomitant]
  20. NUVARING [Suspect]

REACTIONS (39)
  - ABDOMINOPLASTY [None]
  - ANXIETY [None]
  - BACK PAIN [None]
  - BLOOD PRESSURE DECREASED [None]
  - BREAST FIBROSIS [None]
  - CERVICAL CYST [None]
  - CONDITION AGGRAVATED [None]
  - CONSTIPATION [None]
  - DEPRESSION [None]
  - DYSFUNCTIONAL UTERINE BLEEDING [None]
  - ELECTIVE SURGERY [None]
  - ELECTROCARDIOGRAM QT PROLONGED [None]
  - ELECTROCARDIOGRAM T WAVE ABNORMAL [None]
  - FEAR OF DEATH [None]
  - FEAR OF DISEASE [None]
  - HAEMATOCRIT DECREASED [None]
  - HAEMATOMA [None]
  - HAEMOGLOBIN DECREASED [None]
  - HEART RATE INCREASED [None]
  - HYPERCOAGULATION [None]
  - HYPOAESTHESIA [None]
  - INSOMNIA [None]
  - LABORATORY TEST ABNORMAL [None]
  - LIPOSUCTION [None]
  - MUSCULOSKELETAL PAIN [None]
  - NECK PAIN [None]
  - POST PROCEDURAL DRAINAGE [None]
  - POST PROCEDURAL HAEMORRHAGE [None]
  - PROTHROMBIN TIME PROLONGED [None]
  - PULMONARY EMBOLISM [None]
  - RASH [None]
  - SKIN DISCOLOURATION [None]
  - THROMBOSIS [None]
  - THROMBOSIS IN DEVICE [None]
  - TOBACCO USER [None]
  - URINE OUTPUT DECREASED [None]
  - VAGINAL HAEMORRHAGE [None]
  - VASCULAR ANOMALY [None]
  - WHITE BLOOD CELL COUNT INCREASED [None]
